FAERS Safety Report 6832827-0 (Version None)
Quarter: 2010Q3

REPORT INFORMATION
  Report Type: 
  Country: None (occurrence: None)
  Receive Date: 20100712
  Receipt Date: 20100702
  Transmission Date: 20110219
  Serious: Yes (Hospitalization)
  Sender: FDA-Public Use
  Company Number: AU-PURDUE-USA-2010-0044895

PATIENT
  Sex: Male

DRUGS (6)
  1. BLINDED BTDS PATCH [Suspect]
     Indication: NEURALGIA
     Dosage: 10 MCG, Q1H
     Route: 062
     Dates: start: 20100618
  2. BLINDED PLACEBO TRANSDERMAL PATCH [Suspect]
     Indication: NEURALGIA
     Dosage: 10 MCG, Q1H
     Route: 062
     Dates: start: 20100618
  3. PANADEINE                          /00116401/ [Concomitant]
     Indication: PRODUCT USED FOR UNKNOWN INDICATION
     Dosage: UNK
     Dates: start: 20100625, end: 20100630
  4. MORPHINE SULFATE [Concomitant]
     Indication: PRODUCT USED FOR UNKNOWN INDICATION
     Dosage: UNK
     Dates: start: 20100625, end: 20100629
  5. NOVORAPID [Concomitant]
     Indication: PRODUCT USED FOR UNKNOWN INDICATION
     Dosage: UNK
     Dates: start: 20070101
  6. LANTUS [Concomitant]
     Indication: PRODUCT USED FOR UNKNOWN INDICATION
     Dosage: UNK
     Dates: start: 20100626

REACTIONS (1)
  - DIABETIC FOOT INFECTION [None]
